FAERS Safety Report 5514017-7 (Version None)
Quarter: 2007Q4

REPORT INFORMATION
  Report Type: 
  Country: None (occurrence: None)
  Receive Date: 20071113
  Receipt Date: 20071105
  Transmission Date: 20080405
  Serious: Yes (Hospitalization)
  Sender: FDA-Public Use
  Company Number: FR-WYE-G00567207

PATIENT
  Sex: Female

DRUGS (7)
  1. ADVIL LIQUI-GELS [Suspect]
     Indication: PYREXIA
     Dosage: UNSPECIFIED
     Route: 048
     Dates: start: 20070519, end: 20070525
  2. VOGALENE [Concomitant]
     Indication: VOMITING
     Dosage: UNSPECIFIED
     Route: 048
     Dates: start: 20070519, end: 20070525
  3. AMIKACIN [Concomitant]
     Indication: SEPTIC SHOCK
     Dosage: UNKNOWN
     Dates: start: 20070520, end: 20070501
  4. TAZOCILLINE [Suspect]
     Indication: SEPTIC SHOCK
     Dosage: UNKNOWN
     Route: 042
     Dates: start: 20070520, end: 20070501
  5. VANCOMYCIN [Concomitant]
     Indication: SEPTIC SHOCK
     Dosage: UNKNOWN
     Dates: start: 20070520, end: 20070501
  6. ACETAMINOPHEN [Suspect]
     Indication: PYREXIA
     Dosage: UNSPECIFIED
     Route: 048
     Dates: start: 20070519
  7. NIFUROXAZIDE [Concomitant]
     Indication: DIARRHOEA
     Dosage: UNSPECIFIED
     Route: 048
     Dates: start: 20070519, end: 20070525

REACTIONS (6)
  - AGRANULOCYTOSIS [None]
  - ANAEMIA [None]
  - PLATELET COUNT DECREASED [None]
  - PSEUDOMONAL SEPSIS [None]
  - RESPIRATORY DISTRESS [None]
  - SEPTIC SHOCK [None]
